FAERS Safety Report 24063591 (Version 2)
Quarter: 2024Q3

REPORT INFORMATION
  Report Type: Report from Study
  Country: GB (occurrence: GB)
  Receive Date: 20240709
  Receipt Date: 20240915
  Transmission Date: 20241016
  Serious: Yes (Hospitalization, Other)
  Sender: UCB
  Company Number: GB-UCBSA-2024034447

PATIENT
  Sex: Male

DRUGS (2)
  1. BIMEKIZUMAB [Suspect]
     Active Substance: BIMEKIZUMAB
     Indication: Psoriasis
     Dosage: UNK
     Route: 058
     Dates: start: 202308
  2. BIMEKIZUMAB [Suspect]
     Active Substance: BIMEKIZUMAB
     Dosage: UNK
     Route: 058
     Dates: start: 202308

REACTIONS (7)
  - Seizure [Unknown]
  - Rectal abscess [Recovered/Resolved]
  - Tongue biting [Unknown]
  - Cough [Unknown]
  - Memory impairment [Unknown]
  - Psoriasis [Unknown]
  - Drug ineffective [Unknown]
